FAERS Safety Report 7027016-3 (Version None)
Quarter: 2010Q4

REPORT INFORMATION
  Report Type: 
  Country: None (occurrence: None)
  Receive Date: 20101004
  Receipt Date: 20100924
  Transmission Date: 20110411
  Serious: Yes (Other)
  Sender: FDA-Public Use
  Company Number: US-ABBOTT-10P-163-0634597-00

PATIENT
  Sex: Male
  Weight: 84.898 kg

DRUGS (6)
  1. NIASPAN [Suspect]
     Indication: PRODUCT USED FOR UNKNOWN INDICATION
     Dates: start: 20050101
  2. NIASPAN [Suspect]
  3. NIASPAN [Suspect]
     Dosage: GRADUALLY INCREASED DOSE TO 1500 MG
  4. NIASPAN [Suspect]
  5. LIPITOR [Concomitant]
     Indication: PRODUCT USED FOR UNKNOWN INDICATION
  6. ASPIRIN [Concomitant]
     Indication: PRODUCT USED FOR UNKNOWN INDICATION

REACTIONS (10)
  - ABDOMINAL DISCOMFORT [None]
  - CHEST PAIN [None]
  - DRY MOUTH [None]
  - FLUSHING [None]
  - HEART RATE INCREASED [None]
  - HOT FLUSH [None]
  - HYPERHIDROSIS [None]
  - MALAISE [None]
  - PALPITATIONS [None]
  - RESTLESS LEGS SYNDROME [None]
